FAERS Safety Report 16444032 (Version 1)
Quarter: 2019Q2

REPORT INFORMATION
  Report Type: Spontaneous
  Country: NL (occurrence: NL)
  Receive Date: 20190618
  Receipt Date: 20190618
  Transmission Date: 20190711
  Serious: Yes (Death, Hospitalization, Other)
  Sender: FDA-Public Use
  Company Number: NL-ACCORD-133255

PATIENT
  Age: 9 Year
  Sex: Male

DRUGS (21)
  1. MYCOPHENOLIC ACID. [Concomitant]
     Active Substance: MYCOPHENOLIC ACID
     Indication: IMMUNOSUPPRESSANT DRUG THERAPY
  2. MELPHALAN. [Suspect]
     Active Substance: MELPHALAN
     Indication: IMMUNOSUPPRESSION
     Dosage: 70 MG/M2, DAY 1
  3. URSODEOXYCHOLATE SODIUM/URSODEOXYCHOLIC ACID [Concomitant]
  4. AMPHOTERICIN B/AMPHOTERICIN B/LIPOSOME [Concomitant]
     Indication: INFECTION PROPHYLAXIS
  5. PREDNISONE. [Suspect]
     Active Substance: PREDNISONE
     Indication: IMMUNOSUPPRESSANT DRUG THERAPY
     Dosage: 0.3 MG/KG/DAY
  6. TREOSULFAN [Suspect]
     Active Substance: TREOSULFAN
     Indication: IMMUNOSUPPRESSANT DRUG THERAPY
     Dosage: TOTAL DAILY DOSE: 14000 MG/M2
  7. CYCLOPHOSPHAMIDE/CYCLOPHOSPHAMIDE MONOHYDRATE [Suspect]
     Active Substance: CYCLOPHOSPHAMIDE
     Indication: IMMUNOSUPPRESSANT DRUG THERAPY
     Dosage: 50 MG/KG, ONCE
  8. ANTITHYMOCYTE IMMUNOGLOBULIN [Suspect]
     Active Substance: THYMOCYTE IMMUNE GLOBULIN NOS
     Indication: BONE MARROW CONDITIONING REGIMEN
  9. CHENODEOXYCHOLIC ACID [Concomitant]
     Active Substance: CHENODIOL
  10. HEMATIN [Concomitant]
     Active Substance: HEMATIN
  11. POLYMYXIN B. [Concomitant]
     Active Substance: POLYMYXIN B
     Indication: INFECTION PROPHYLAXIS
  12. BASILIXIMAB [Suspect]
     Active Substance: BASILIXIMAB
     Indication: IMMUNOSUPPRESSANT DRUG THERAPY
  13. NEOMYCIN. [Concomitant]
     Active Substance: NEOMYCIN
  14. IMMUNOGLOBULINS NOS [Concomitant]
     Active Substance: IMMUNE GLOBULIN NOS
     Indication: INFECTION PROPHYLAXIS
     Route: 042
  15. VALACICLOVIR [Concomitant]
     Active Substance: VALACYCLOVIR HYDROCHLORIDE
  16. DEFIBROTIDE [Concomitant]
     Active Substance: DEFIBROTIDE (BOVINE)
     Indication: PROPHYLAXIS
  17. PENTAMIDINE [Concomitant]
     Active Substance: PENTAMIDINE
     Indication: INFECTION PROPHYLAXIS
     Route: 055
  18. ALEMTUZUMAB [Suspect]
     Active Substance: ALEMTUZUMAB
     Indication: BONE MARROW CONDITIONING REGIMEN
     Dosage: TOTAL DOSE 0.5 MG/KG
  19. PREDNISONE. [Concomitant]
     Active Substance: PREDNISONE
     Indication: PROPHYLAXIS AGAINST TRANSPLANT REJECTION
  20. TACROLIMUS. [Suspect]
     Active Substance: TACROLIMUS
     Indication: IMMUNOSUPPRESSANT DRUG THERAPY
  21. FLUDARABINE/FLUDARABINE PHOSPHATE [Suspect]
     Active Substance: FLUDARABINE PHOSPHATE
     Indication: IMMUNOSUPPRESSANT DRUG THERAPY
     Dosage: TOTAL DAILY DOSE: 30 MG/M2

REACTIONS (21)
  - Gastroenteritis viral [Unknown]
  - Herpes zoster disseminated [Fatal]
  - Respiratory failure [Fatal]
  - Staphylococcal skin infection [Unknown]
  - Human bocavirus infection [Unknown]
  - Retinitis [Fatal]
  - Multiple organ dysfunction syndrome [Fatal]
  - Varicella zoster virus infection [Fatal]
  - Visual impairment [Unknown]
  - Herpes zoster [Fatal]
  - Staphylococcal scalded skin syndrome [Unknown]
  - Gastrointestinal infection [Unknown]
  - Optic neuritis [Fatal]
  - Adenovirus infection [Unknown]
  - Dehydration [Unknown]
  - Ear infection [Unknown]
  - Renal failure [Unknown]
  - Varicella virus test positive [Unknown]
  - Lymphopenia [Unknown]
  - Anaphylactic shock [Recovered/Resolved]
  - Vanishing bile duct syndrome [Recovering/Resolving]
